FAERS Safety Report 5584904-2 (Version None)
Quarter: 2008Q1

REPORT INFORMATION
  Report Type: 
  Country: None (occurrence: None)
  Receive Date: 20080104
  Receipt Date: 20071228
  Transmission Date: 20080703
  Serious: Yes (Hospitalization, Other)
  Sender: FDA-Public Use
  Company Number: 2007SP021047

PATIENT
  Age: 60 Year
  Sex: Female
  Weight: 63.5036 kg

DRUGS (28)
  1. PEG-INTRON [Suspect]
     Indication: HEPATITIS C
     Dosage: 30 MCG; QW; SC
     Route: 058
     Dates: start: 20070918, end: 20071013
  2. REBETOL [Suspect]
     Indication: HEPATITIS C
     Dosage: 60 MG;QD; PO
     Route: 048
     Dates: start: 20070918, end: 20071013
  3. POCRIT [Suspect]
     Indication: ANAEMIA
     Dosage: 40000 IU;QW; SC
     Route: 058
     Dates: start: 20071009, end: 20071013
  4. LASIX [Concomitant]
  5. QUALAQUIN [Concomitant]
  6. ACIPHEX [Concomitant]
  7. CLONIPINE [Concomitant]
  8. MILK THISTLE [Concomitant]
  9. VALIUM [Concomitant]
  10. LACTULOSE [Concomitant]
  11. CELLCEPT [Concomitant]
  12. TACROLIMUS [Concomitant]
  13. PREDNISONE TAB [Concomitant]
  14. ACYCLOVIR [Concomitant]
  15. NORVASC [Concomitant]
  16. OSCAL [Concomitant]
  17. COLACE [Concomitant]
  18. INSULIN [Concomitant]
  19. MAGNESIUM OXIDE [Concomitant]
  20. METOPROLOL [Concomitant]
  21. MULTI-VITAMIN [Concomitant]
  22. NYSTATIN [Concomitant]
  23. PROGRAF [Concomitant]
  24. ACIPFIEX [Concomitant]
  25. ASPIRIN [Concomitant]
  26. ACTIGALL [Concomitant]
  27. KLONOPIN [Concomitant]
  28. ALDACTONE [Concomitant]

REACTIONS (14)
  - ANAEMIA [None]
  - BACTERIAL INFECTION [None]
  - BLOOD CULTURE POSITIVE [None]
  - BLOOD DISORDER [None]
  - CITROBACTER INFECTION [None]
  - DECREASED APPETITE [None]
  - DIARRHOEA [None]
  - ENTEROCOCCAL INFECTION [None]
  - HEADACHE [None]
  - MULTIPLE-DRUG RESISTANCE [None]
  - PERITONITIS BACTERIAL [None]
  - PLEURAL EFFUSION [None]
  - SINUSITIS [None]
  - VOMITING [None]
